FAERS Safety Report 25765777 (Version 1)
Quarter: 2025Q3

REPORT INFORMATION
  Report Type: Spontaneous
  Country: US (occurrence: US)
  Receive Date: 20250905
  Receipt Date: 20250905
  Transmission Date: 20251020
  Serious: No
  Sender: DOMPE FARMACEUTICI
  Company Number: US-FARMAPROD-202407-2437

PATIENT
  Sex: Female

DRUGS (17)
  1. OXERVATE [Suspect]
     Active Substance: CENEGERMIN-BKBJ
     Indication: Neurotrophic keratopathy
     Route: 047
     Dates: start: 20240620
  2. OXERVATE [Suspect]
     Active Substance: CENEGERMIN-BKBJ
     Indication: Hypoaesthesia eye
     Route: 047
     Dates: start: 20240620
  3. OXERVATE [Suspect]
     Active Substance: CENEGERMIN-BKBJ
  4. OXERVATE [Suspect]
     Active Substance: CENEGERMIN-BKBJ
  5. KIRKLAND SIGNATURE ALLER FLO [Concomitant]
     Active Substance: FLUTICASONE PROPIONATE
  6. PROPRANOLOL HYDROCHLORIDE [Concomitant]
     Active Substance: PROPRANOLOL HYDROCHLORIDE
  7. MELATONIN [Concomitant]
     Active Substance: MELATONIN
  8. FISH OIL [Concomitant]
     Active Substance: FISH OIL
  9. ACYCLOVIR [Concomitant]
     Active Substance: ACYCLOVIR
  10. VITAMIN D3 [Concomitant]
     Active Substance: CHOLECALCIFEROL
  11. VITAMINS [Concomitant]
     Active Substance: VITAMINS
  12. SYSTANE (HYPROMELLOSE 2910 (4000 MPA.S)) [Concomitant]
     Active Substance: HYPROMELLOSE 2910 (4000 MPA.S)
  13. RESTASIS [Concomitant]
     Active Substance: CYCLOSPORINE
  14. STOOL SOFTENER-LAXATIVE [Concomitant]
  15. ESCITALOPRAM OXALATE [Concomitant]
     Active Substance: ESCITALOPRAM OXALATE
  16. EYSUVIS [Concomitant]
     Active Substance: LOTEPREDNOL ETABONATE
  17. LOTEMAX [Concomitant]
     Active Substance: LOTEPREDNOL ETABONATE

REACTIONS (7)
  - Eye pain [Not Recovered/Not Resolved]
  - Periorbital swelling [Unknown]
  - Vision blurred [Unknown]
  - Eye discharge [Unknown]
  - Eyelid pain [Unknown]
  - Eye irritation [Not Recovered/Not Resolved]
  - Periorbital pain [Not Recovered/Not Resolved]
